FAERS Safety Report 7772780-9 (Version None)
Quarter: 2011Q3

REPORT INFORMATION
  Report Type: 
  Country: None (occurrence: None)
  Receive Date: 20110922
  Receipt Date: 20100521
  Transmission Date: 20111222
  Serious: Yes (Hospitalization)
  Sender: FDA-Public Use
  Company Number: US-ASTRAZENECA-2008UW19622

PATIENT
  Age: 47 Year
  Sex: Female

DRUGS (6)
  1. RISPERDAL [Concomitant]
     Dosage: 1 MG TO 3 MG
     Dates: start: 20050201
  2. ESKALITH [Concomitant]
     Dosage: 450 TO 1800 MG
     Dates: start: 20041210
  3. GEODON [Concomitant]
     Dates: start: 20080101
  4. SEROQUEL [Suspect]
     Indication: BIPOLAR DISORDER
     Dosage: 200 MG TO 1200 MG
     Route: 048
     Dates: start: 20000801, end: 20061201
  5. CLONOPIN/KLONOPIN [Concomitant]
     Dosage: 1 TO 2 MG
     Dates: start: 20050201
  6. XANAX [Concomitant]
     Dates: start: 20080101

REACTIONS (2)
  - HYPERGLYCAEMIC HYPEROSMOLAR NONKETOTIC SYNDROME [None]
  - TYPE 2 DIABETES MELLITUS [None]
